FAERS Safety Report 8995244 (Version 1)
Quarter: 2012Q4

REPORT INFORMATION
  Report Type: Spontaneous
  Country: TR (occurrence: None)
  Receive Date: 20121221
  Receipt Date: 20121221
  Transmission Date: 20130627
  Serious: Yes (Hospitalization, Other)
  Sender: FDA-Public Use
  Company Number: 2012P1068112

PATIENT
  Age: 12 Year
  Sex: Female

DRUGS (2)
  1. LAMOTRIGINE [Suspect]
     Indication: SEIZURES
     Dosage: 2 weeks
  2. LEVETIRACETAM [Suspect]
     Indication: EPILEPSY
     Dosage: 2 years

REACTIONS (3)
  - No therapeutic response [None]
  - Blood sodium decreased [None]
  - Toxic epidermal necrolysis [None]
